FAERS Safety Report 10190059 (Version 2)
Quarter: 2014Q2

REPORT INFORMATION
  Report Type: Report from Study
  Country: US (occurrence: US)
  Receive Date: 20140522
  Receipt Date: 20140527
  Transmission Date: 20141212
  Serious: Yes (Death)
  Sender: FDA-Public Use
  Company Number: PHHY2014US062250

PATIENT
  Sex: Male
  Weight: 128.6 kg

DRUGS (3)
  1. ZYKADIA [Suspect]
     Indication: NON-SMALL CELL LUNG CANCER
     Dosage: 750 MG PER DAY
     Route: 048
     Dates: start: 20140320
  2. FLUID/ELECTROLYTE REPLACEMENT THERAPY [Concomitant]
     Indication: DEHYDRATION
     Dosage: UNK UKN, UNK
     Route: 042
     Dates: start: 20140412
  3. BROAD SPECTRUM ANTIBIOTICS [Concomitant]
     Indication: SEPSIS
     Dosage: UNK UKN, UNK
     Dates: start: 20140412

REACTIONS (1)
  - Respiratory failure [Fatal]
